FAERS Safety Report 12522922 (Version 3)
Quarter: 2018Q2

REPORT INFORMATION
  Report Type: Spontaneous
  Country: US (occurrence: US)
  Receive Date: 20160701
  Receipt Date: 20180410
  Transmission Date: 20180711
  Serious: Yes (Hospitalization, Disabling, Other)
  Sender: FDA-Public Use
  Company Number: US-SAOL THERAPEUTICS-2016SAO00003

PATIENT
  Age: 56 Year
  Sex: Female

DRUGS (6)
  1. CLONIDINE. [Suspect]
     Active Substance: CLONIDINE
     Dosage: 230 ?G, 1X/DAY
     Route: 037
     Dates: end: 20151112
  2. MORPHINE [Suspect]
     Active Substance: MORPHINE
     Dosage: 17.2 MG, 1X/DAY
     Route: 037
     Dates: end: 20151112
  3. UNSPECIFIED ORAL MEDICATION [Concomitant]
     Active Substance: UNSPECIFIED INGREDIENT
     Dosage: UNK
     Route: 048
  4. PROMETHAZINE [Concomitant]
     Active Substance: PROMETHAZINE\PROMETHAZINE HYDROCHLORIDE
  5. BACLOFEN. [Suspect]
     Active Substance: BACLOFEN
     Indication: PAIN
     Dosage: 230 ?G, 1X/DAY
     Route: 037
     Dates: end: 20151112
  6. FENTANYL. [Suspect]
     Active Substance: FENTANYL
     Route: 062

REACTIONS (12)
  - Pain [Not Recovered/Not Resolved]
  - Malaise [Unknown]
  - Muscle tightness [Unknown]
  - Urine analysis abnormal [Unknown]
  - Vomiting [Unknown]
  - Fall [Unknown]
  - Loss of personal independence in daily activities [Not Recovered/Not Resolved]
  - Therapeutic response decreased [Unknown]
  - Weight decreased [Unknown]
  - Drug withdrawal syndrome [Unknown]
  - Device malfunction [Recovered/Resolved]
  - Back pain [Unknown]

NARRATIVE: CASE EVENT DATE: 20151104
